FAERS Safety Report 5591006-8 (Version None)
Quarter: 2008Q1

REPORT INFORMATION
  Report Type: 
  Country: None (occurrence: None)
  Receive Date: 20080115
  Receipt Date: 20080107
  Transmission Date: 20080703
  Serious: Yes (Death)
  Sender: FDA-Public Use
  Company Number: US-JNJFOC-20071007988

PATIENT
  Sex: Male
  Weight: 83.92 kg

DRUGS (2)
  1. FENTANYL [Suspect]
     Indication: PAIN
     Route: 062
  2. VICODIN [Concomitant]
     Indication: BACK PAIN

REACTIONS (5)
  - HEPATIC NECROSIS [None]
  - INFLAMMATION [None]
  - OVERDOSE [None]
  - PHARMACEUTICAL PRODUCT COMPLAINT [None]
  - PULMONARY CONGESTION [None]
